FAERS Safety Report 21116908 (Version 1)
Quarter: 2022Q3

REPORT INFORMATION
  Report Type: Spontaneous
  Country: US (occurrence: US)
  Receive Date: 20220722
  Receipt Date: 20220722
  Transmission Date: 20221027
  Serious: Yes (Other)
  Sender: FDA-Public Use
  Company Number: US-TEVA-2022-US-2055642

PATIENT
  Age: 8 Year
  Sex: Male

DRUGS (3)
  1. BECLOMETHASONE DIPROPIONATE [Suspect]
     Active Substance: BECLOMETHASONE DIPROPIONATE
     Indication: Eczema
     Route: 055
  2. BECLOMETHASONE DIPROPIONATE [Suspect]
     Active Substance: BECLOMETHASONE DIPROPIONATE
     Indication: Eczema
     Dosage: FOUR MONTHS PRIOR TO PRESENTATION, HE REDUCED BECLOMETASONE INHALER BY 50%
     Route: 055
  3. MOMETASONE [Suspect]
     Active Substance: MOMETASONE
     Indication: Eczema
     Route: 045

REACTIONS (3)
  - Idiopathic intracranial hypertension [Recovered/Resolved]
  - Adrenal insufficiency [Recovered/Resolved]
  - Steroid withdrawal syndrome [Unknown]
